FAERS Safety Report 25428135 (Version 1)
Quarter: 2025Q2

REPORT INFORMATION
  Report Type: Other
  Country: US (occurrence: US)
  Receive Date: 20250612
  Receipt Date: 20250612
  Transmission Date: 20250717
  Serious: Yes (Other)
  Sender: DEXCEL LTD.
  Company Number: US-DEXPHARM-2025-3388

PATIENT
  Age: 53 Year
  Sex: Male

DRUGS (1)
  1. HERBALS [Suspect]
     Active Substance: HERBALS
     Indication: Myalgia

REACTIONS (2)
  - Acute generalised exanthematous pustulosis [Recovered/Resolved]
  - Psoriasis [Recovered/Resolved]
